FAERS Safety Report 10527107 (Version 2)
Quarter: 2014Q4

REPORT INFORMATION
  Report Type: Spontaneous
  Country: US (occurrence: None)
  Receive Date: 20141016
  Receipt Date: 20141208
  Transmission Date: 20150528
  Serious: No
  Sender: FDA-Public Use
  Company Number: 2014-US-009087

PATIENT
  Sex: Female

DRUGS (2)
  1. XYREM [Suspect]
     Active Substance: SODIUM OXYBATE
     Indication: CATAPLEXY
     Route: 048
     Dates: start: 201304, end: 201306
  2. XYREM [Suspect]
     Active Substance: SODIUM OXYBATE
     Indication: NARCOLEPSY
     Route: 048
     Dates: start: 201304, end: 201306

REACTIONS (1)
  - Schizophrenia [None]
